FAERS Safety Report 14275480 (Version 1)
Quarter: 2017Q4

REPORT INFORMATION
  Report Type: Spontaneous
  Country: FR (occurrence: FR)
  Receive Date: 20171212
  Receipt Date: 20171212
  Transmission Date: 20180321
  Serious: Yes (Other)
  Sender: FDA-Public Use
  Company Number: FR-MERCK KGAA-2037028

PATIENT
  Age: 40 Year
  Sex: Female
  Weight: 44 kg

DRUGS (1)
  1. NOVOTHYROX [Suspect]
     Active Substance: LEVOTHYROXINE SODIUM
     Indication: POST PROCEDURAL HYPOTHYROIDISM

REACTIONS (23)
  - Tongue coated [None]
  - Weight increased [None]
  - Vertigo [None]
  - Abdominal pain upper [None]
  - Chest discomfort [None]
  - Migraine [None]
  - Visual impairment [None]
  - Speech disorder [None]
  - Oral pruritus [None]
  - Tachycardia [None]
  - Insomnia [None]
  - Hyperthyroidism [None]
  - Alopecia [None]
  - Back pain [None]
  - Hypothyroidism [None]
  - Flatulence [None]
  - Abdominal discomfort [None]
  - Memory impairment [None]
  - Mood altered [None]
  - Blood thyroid stimulating hormone increased [None]
  - Peripheral coldness [None]
  - Fatigue [None]
  - Muscle spasms [None]

NARRATIVE: CASE EVENT DATE: 2017
